FAERS Safety Report 11537374 (Version 1)
Quarter: 2015Q3

REPORT INFORMATION
  Report Type: Spontaneous
  Country: US (occurrence: US)
  Receive Date: 20150922
  Receipt Date: 20150922
  Transmission Date: 20151125
  Serious: No
  Sender: FDA-Public Use
  Company Number: US-TARO-2015TAR00404

PATIENT
  Sex: Female
  Weight: 62.13 kg

DRUGS (3)
  1. PERCOCET [Concomitant]
     Active Substance: ACETAMINOPHEN\OXYCODONE HYDROCHLORIDE
     Dosage: UNK, AS NEEDED
  2. LIDOCAINE OINTMENT USP 5% (UNFLAVORED) [Suspect]
     Active Substance: LIDOCAINE
     Indication: BACK PAIN
     Dosage: A SMALL AMOUNT
     Route: 061
  3. LIDOCAINE OINTMENT USP 5% (UNFLAVORED) [Suspect]
     Active Substance: LIDOCAINE
     Dosage: UNK

REACTIONS (1)
  - Drug ineffective [Not Recovered/Not Resolved]
